FAERS Safety Report 20261748 (Version 2)
Quarter: 2022Q1

REPORT INFORMATION
  Report Type: Spontaneous
  Country: BE (occurrence: BE)
  Receive Date: 20211231
  Receipt Date: 20220207
  Transmission Date: 20220423
  Serious: Yes (Hospitalization, Other)
  Sender: FDA-Public Use
  Company Number: BE-TEVA-2021-BE-1993021

PATIENT
  Age: 55 Year
  Sex: Female
  Weight: 49 kg

DRUGS (2)
  1. MYCOPHENOLATE MOFETIL [Suspect]
     Active Substance: MYCOPHENOLATE MOFETIL
     Indication: Immunosuppressant drug therapy
     Route: 065
     Dates: start: 2018
  2. TACROLIMUS [Suspect]
     Active Substance: TACROLIMUS
     Indication: Immunosuppressant drug therapy
     Route: 065
     Dates: start: 2018

REACTIONS (12)
  - Hepatic cyst infection [Recovering/Resolving]
  - Liver abscess [Recovered/Resolved]
  - Enterococcal infection [Recovered/Resolved]
  - Sepsis [Recovering/Resolving]
  - Weight decreased [Recovering/Resolving]
  - Malnutrition [Recovering/Resolving]
  - Enterococcal bacteraemia [Recovering/Resolving]
  - Pseudomonal bacteraemia [Recovering/Resolving]
  - Klebsiella bacteraemia [Recovering/Resolving]
  - Pneumococcal bacteraemia [Recovering/Resolving]
  - Stenotrophomonas bacteraemia [Recovering/Resolving]
  - Citrobacter bacteraemia [Recovering/Resolving]

NARRATIVE: CASE EVENT DATE: 20180801
